FAERS Safety Report 6538020-3 (Version None)
Quarter: 2010Q1

REPORT INFORMATION
  Report Type: 
  Country: None (occurrence: None)
  Receive Date: 20100114
  Receipt Date: 20100107
  Transmission Date: 20100710
  Serious: Yes (Hospitalization)
  Sender: FDA-Public Use
  Company Number: US-JNJFOC-20100102351

PATIENT
  Sex: Male
  Weight: 47.3 kg

DRUGS (3)
  1. INFLIXIMAB [Suspect]
     Route: 042
     Dates: start: 20090617, end: 20091110
  2. INFLIXIMAB [Suspect]
     Indication: CROHN'S DISEASE
     Route: 042
     Dates: start: 20090617, end: 20091110
  3. VITAMIN [Concomitant]

REACTIONS (2)
  - CELLULITIS [None]
  - CROHN'S DISEASE [None]
